FAERS Safety Report 6111500-0 (Version None)
Quarter: 2009Q1

REPORT INFORMATION
  Report Type: 
  Country: None (occurrence: None)
  Receive Date: 20090310
  Receipt Date: 20090310
  Transmission Date: 20090719
  Serious: Yes (Life-Threatening)
  Sender: FDA-Public Use
  Company Number: None

PATIENT
  Age: 31 Year
  Sex: Male
  Weight: 93.8946 kg

DRUGS (2)
  1. PREVACID [Suspect]
     Indication: GASTROINTESTINAL ULCER
     Dosage: 1 1 PO
     Route: 048
     Dates: start: 20040607, end: 20041112
  2. OMEPRAZOLE [Suspect]
     Dosage: 1 1 PO
     Route: 048
     Dates: start: 20080805, end: 20080904

REACTIONS (1)
  - TUBULOINTERSTITIAL NEPHRITIS [None]
